FAERS Safety Report 8297305-3 (Version None)
Quarter: 2012Q2

REPORT INFORMATION
  Report Type: 
  Country: None (occurrence: None)
  Receive Date: 20120416
  Receipt Date: 20120410
  Transmission Date: 20120825
  Serious: Yes (Other)
  Sender: FDA-Public Use
  Company Number: 2012063502

PATIENT
  Age: 81 Year
  Sex: Male
  Weight: 68 kg

DRUGS (2)
  1. FRAGMIN [Suspect]
     Indication: HIP ARTHROPLASTY
     Dosage: 5000 IU, 1X/DAY, SUBCUTANEOUS, 5000 IU, 1X/DAY, SUBCUTANEOUS
     Route: 058
     Dates: start: 20120306
  2. FRAGMIN [Suspect]
     Indication: HIP ARTHROPLASTY
     Dosage: 5000 IU, 1X/DAY, SUBCUTANEOUS, 5000 IU, 1X/DAY, SUBCUTANEOUS
     Route: 058
     Dates: start: 20120229, end: 20120303

REACTIONS (5)
  - DEVICE BREAKAGE [None]
  - URINARY TRACT INFECTION [None]
  - INJECTION SITE EXTRAVASATION [None]
  - PROSTATIC DISORDER [None]
  - HAEMATURIA [None]
